FAERS Safety Report 7072446-7 (Version None)
Quarter: 2010Q4

REPORT INFORMATION
  Report Type: 
  Country: None (occurrence: None)
  Receive Date: 20101029
  Receipt Date: 20100128
  Transmission Date: 20110411
  Serious: No
  Sender: FDA-Public Use
  Company Number: A0841875A

PATIENT
  Age: 71 Year
  Sex: Male

DRUGS (10)
  1. ADVAIR DISKUS 100/50 [Suspect]
     Dosage: 2PUFF TWICE PER DAY
     Route: 055
     Dates: start: 20100101
  2. NASONEX [Concomitant]
  3. TIMOLOL MALEATE [Concomitant]
  4. METOPROLOL [Concomitant]
  5. CLONIDINE [Concomitant]
  6. DILTIAZEM [Concomitant]
  7. TRIAMTERENE AND HYDROCHLOROTHIAZIDE [Concomitant]
  8. GEMFIBROZIL [Concomitant]
  9. ALLOPURINOL [Concomitant]
  10. ACTOS [Concomitant]

REACTIONS (1)
  - COUGH [None]
